FAERS Safety Report 7811120-3 (Version None)
Quarter: 2011Q4

REPORT INFORMATION
  Report Type: 
  Country: None (occurrence: None)
  Receive Date: 20111013
  Receipt Date: 20110930
  Transmission Date: 20120403
  Serious: Yes (Hospitalization)
  Sender: FDA-Public Use
  Company Number: PHHO2011FR16887

PATIENT
  Sex: Male
  Weight: 88 kg

DRUGS (3)
  1. MYCOPHENOLATE MOFETIL (CELLCEPT) [Suspect]
     Indication: RENAL TRANSPLANT
     Dosage: 3 G, UNK
     Route: 048
     Dates: start: 20110905
  2. PREDNISONE [Suspect]
     Indication: RENAL TRANSPLANT
     Dosage: 17.5
     Route: 048
     Dates: start: 20110906
  3. NEORAL [Suspect]
     Indication: RENAL TRANSPLANT
     Dosage: 400 MG, UNK
     Route: 048
     Dates: start: 20110907

REACTIONS (3)
  - ARTERIOVENOUS FISTULA [None]
  - RENAL IMPAIRMENT [None]
  - ANAEMIA [None]
